FAERS Safety Report 14584338 (Version 2)
Quarter: 2018Q1

REPORT INFORMATION
  Report Type: Spontaneous
  Country: JP (occurrence: JP)
  Receive Date: 20180228
  Receipt Date: 20180313
  Transmission Date: 20180509
  Serious: Yes (Hospitalization, Other)
  Sender: FDA-Public Use
  Company Number: JP-ROCHE-2070932

PATIENT
  Age: 68 Year
  Sex: Female
  Weight: 58 kg

DRUGS (14)
  1. THYRADIN-S [Concomitant]
     Active Substance: LEVOTHYROXINE
     Dosage: DOSAGE IS UNCERTAIN.
     Route: 048
  2. AROTINOLOL HYDROCHLORIDE [Concomitant]
     Active Substance: AROTINOLOL HYDROCHLORIDE
     Dosage: DOSAGE IS UNCERTAIN.
     Route: 065
  3. ALLOPURINOL. [Concomitant]
     Active Substance: ALLOPURINOL
     Dosage: DOSAGE IS UNCERTAIN.
     Route: 065
  4. LYRICA [Concomitant]
     Active Substance: PREGABALIN
     Dosage: DOSAGE IS UNCERTAIN.
     Route: 048
  5. PROPACALL [Concomitant]
     Active Substance: TICLOPIDINE HYDROCHLORIDE
     Dosage: DOSAGE IS UNCERTAIN.
     Route: 065
  6. ELIQUIS [Concomitant]
     Active Substance: APIXABAN
     Dosage: DOSAGE IS UNCERTAIN.
     Route: 065
  7. NITRODERM [Concomitant]
     Active Substance: NITROGLYCERIN
     Dosage: DOSAGE IS UNCERTAIN.
     Route: 062
  8. ZOLPIDEM TARTRATE. [Concomitant]
     Active Substance: ZOLPIDEM TARTRATE
     Dosage: DOSAGE IS UNCERTAIN.
     Route: 065
  9. KETOPROFEN. [Concomitant]
     Active Substance: KETOPROFEN
     Dosage: DOSAGE IS UNCERTAIN.
     Route: 061
  10. ZETIA [Concomitant]
     Active Substance: EZETIMIBE
     Dosage: DOSAGE IS UNCERTAIN.
     Route: 065
  11. BEZATOL SR [Concomitant]
     Active Substance: BEZAFIBRATE
     Dosage: DOSAGE IS UNCERTAIN.
     Route: 065
  12. AVASTIN [Suspect]
     Active Substance: BEVACIZUMAB
     Indication: OVARIAN CANCER
     Dosage: DOSAGE IS UNCERTAIN.
     Route: 041
     Dates: start: 20180116, end: 20180116
  13. CELECOX [Concomitant]
     Active Substance: CELECOXIB
     Dosage: DOSAGE IS UNCERTAIN.
     Route: 065
  14. DEPAS (JAPAN) [Concomitant]
     Dosage: DOSAGE IS UNCERTAIN.
     Route: 065

REACTIONS (7)
  - Fracture [Unknown]
  - Pyuria [Unknown]
  - Tumour necrosis [Unknown]
  - Pyrexia [Unknown]
  - Gastrointestinal perforation [Recovering/Resolving]
  - Abscess [Unknown]
  - Fall [Unknown]

NARRATIVE: CASE EVENT DATE: 20180128
